FAERS Safety Report 10220143 (Version 2)
Quarter: 2014Q2

REPORT INFORMATION
  Report Type: Spontaneous
  Country: GB (occurrence: GB)
  Receive Date: 20140605
  Receipt Date: 20140605
  Transmission Date: 20141212
  Serious: Yes (Other)
  Sender: FDA-Public Use
  Company Number: GB-009507513-1303GBR007701

PATIENT
  Age: 20 Year
  Sex: Female

DRUGS (2)
  1. NEXPLANON [Suspect]
     Indication: CONTRACEPTION
     Dosage: UNK
     Route: 059
     Dates: start: 20111220, end: 20130314
  2. NEXPLANON [Suspect]
     Dosage: UNK
     Route: 059
     Dates: start: 20110531, end: 20111220

REACTIONS (5)
  - Abortion spontaneous [Unknown]
  - Incorrect drug administration duration [Unknown]
  - Device kink [Recovered/Resolved]
  - Medical device complication [Recovered/Resolved]
  - Unintended pregnancy [Recovered/Resolved]
